FAERS Safety Report 9283165 (Version 1)
Quarter: 2013Q2

REPORT INFORMATION
  Report Type: Report from Study
  Country: US (occurrence: US)
  Receive Date: 20130510
  Receipt Date: 20130510
  Transmission Date: 20140414
  Serious: Yes (Hospitalization)
  Sender: FDA-Public Use
  Company Number: US-JNJFOC-20130503001

PATIENT
  Age: 70 Year
  Sex: Male
  Weight: 86.18 kg

DRUGS (8)
  1. ZYTIGA [Suspect]
     Indication: PROSTATE CANCER
     Route: 048
     Dates: start: 201301
  2. FENTANYL [Suspect]
     Indication: PRODUCT USED FOR UNKNOWN INDICATION
     Route: 065
  3. PERCOCET [Suspect]
     Indication: PAIN
     Route: 065
     Dates: start: 201304, end: 201304
  4. PERCOCET [Suspect]
     Indication: PAIN
     Route: 065
     Dates: start: 201304
  5. LUPRON [Concomitant]
     Indication: PROSTATIC SPECIFIC ANTIGEN INCREASED
     Route: 065
     Dates: start: 201304
  6. PLAVIX [Concomitant]
     Indication: PRODUCT USED FOR UNKNOWN INDICATION
     Route: 065
     Dates: start: 201304
  7. GABAPENTIN [Concomitant]
     Indication: PRODUCT USED FOR UNKNOWN INDICATION
     Route: 048
  8. UNKNOWN MEDICATION [Concomitant]
     Indication: PRODUCT USED FOR UNKNOWN INDICATION
     Route: 065

REACTIONS (13)
  - Convulsion [Recovered/Resolved]
  - Cerebrovascular accident [Not Recovered/Not Resolved]
  - Incoherent [Not Recovered/Not Resolved]
  - Activities of daily living impaired [Not Recovered/Not Resolved]
  - Speech disorder [Not Recovered/Not Resolved]
  - Adverse reaction [Not Recovered/Not Resolved]
  - Hypersomnia [Not Recovered/Not Resolved]
  - Pain [Unknown]
  - Inadequate analgesia [Unknown]
  - Prostatic specific antigen increased [Not Recovered/Not Resolved]
  - Adverse event [Unknown]
  - Abnormal behaviour [Not Recovered/Not Resolved]
  - Depressed level of consciousness [Not Recovered/Not Resolved]
